FAERS Safety Report 21807446 (Version 1)
Quarter: 2023Q1

REPORT INFORMATION
  Report Type: Spontaneous
  Country: JP (occurrence: JP)
  Receive Date: 20230102
  Receipt Date: 20230102
  Transmission Date: 20230417
  Serious: Yes (Hospitalization)
  Sender: FDA-Public Use
  Company Number: JP-NBI-S201800146

PATIENT
  Age: 71 Year
  Sex: Male

DRUGS (1)
  1. LINAGLIPTIN [Suspect]
     Active Substance: LINAGLIPTIN
     Indication: Type 2 diabetes mellitus
     Route: 048

REACTIONS (3)
  - Stomatitis [Recovered/Resolved]
  - Mucous membrane pemphigoid [Recovering/Resolving]
  - Cytomegalovirus infection [Recovered/Resolved]
